FAERS Safety Report 17348206 (Version 1)
Quarter: 2020Q1

REPORT INFORMATION
  Report Type: Report from Study
  Country: US (occurrence: US)
  Receive Date: 20200129
  Receipt Date: 20200129
  Transmission Date: 20200409
  Serious: No
  Sender: FDA-Public Use
  Company Number: US-EXELIXIS-CABO-19023730

PATIENT
  Age: 70 Year
  Sex: Male

DRUGS (1)
  1. CABOMETYX [Suspect]
     Active Substance: CABOZANTINIB S-MALATE
     Indication: RENAL CANCER
     Dosage: 60 MG, QD(10 PM - W/O FOOD)
     Dates: start: 20190816, end: 20190922

REACTIONS (9)
  - Weight decreased [Unknown]
  - Cough [Unknown]
  - Bladder disorder [Unknown]
  - Oral pain [Unknown]
  - White blood cell count decreased [Unknown]
  - Decreased appetite [Recovering/Resolving]
  - Glossodynia [Unknown]
  - Hepatic enzyme increased [Unknown]
  - Dysphonia [Not Recovered/Not Resolved]

NARRATIVE: CASE EVENT DATE: 201909
